FAERS Safety Report 7676400-3 (Version None)
Quarter: 2011Q3

REPORT INFORMATION
  Report Type: 
  Country: None (occurrence: None)
  Receive Date: 20110811
  Receipt Date: 20110804
  Transmission Date: 20111222
  Serious: No
  Sender: FDA-Public Use
  Company Number: US-PFIZER INC-2011180968

PATIENT
  Age: 43 Year
  Sex: Female

DRUGS (1)
  1. FRAGMIN [Suspect]
     Indication: CEREBROVASCULAR ACCIDENT
     Dosage: 1500
     Dates: start: 20110101

REACTIONS (2)
  - DIZZINESS [None]
  - NAUSEA [None]
